FAERS Safety Report 6922125-9 (Version None)
Quarter: 2010Q3

REPORT INFORMATION
  Report Type: 
  Country: None (occurrence: None)
  Receive Date: 20100812
  Receipt Date: 20100802
  Transmission Date: 20110219
  Serious: Yes (Other)
  Sender: FDA-Public Use
  Company Number: US-ELI_LILLY_AND_COMPANY-US201008001734

PATIENT
  Sex: Male
  Weight: 60.771 kg

DRUGS (5)
  1. EFFIENT [Suspect]
     Indication: MYOCARDIAL INFARCTION
     Dosage: 60 MG, OTHER
     Dates: start: 20100704
  2. EFFIENT [Suspect]
     Dosage: 1 D/F, UNKNOWN
  3. PRAVACHOL [Concomitant]
  4. ENALAPRIL [Concomitant]
  5. ASPIRIN [Concomitant]
     Dosage: 81 MG, UNKNOWN

REACTIONS (2)
  - CENTRAL NERVOUS SYSTEM LESION [None]
  - SCOTOMA [None]
